FAERS Safety Report 5857885-1 (Version None)
Quarter: 2008Q3

REPORT INFORMATION
  Report Type: 
  Country: None (occurrence: None)
  Receive Date: 20080826
  Receipt Date: 20080819
  Transmission Date: 20090109
  Serious: Yes (Other)
  Sender: FDA-Public Use
  Company Number: US-ASTRAZENECA-2008UW17054

PATIENT
  Sex: Female

DRUGS (3)
  1. ATACAND [Suspect]
     Route: 048
  2. LIPITOR [Concomitant]
  3. XALATAN [Concomitant]

REACTIONS (1)
  - OPEN ANGLE GLAUCOMA [None]
